FAERS Safety Report 19784114 (Version 2)
Quarter: 2021Q3

REPORT INFORMATION
  Report Type: Spontaneous
  Country: CN (occurrence: CN)
  Receive Date: 20210903
  Receipt Date: 20210920
  Transmission Date: 20211014
  Serious: Yes (Hospitalization, Other)
  Sender: FDA-Public Use
  Company Number: CN-AMGEN-CHNSP2021134137

PATIENT
  Age: 49 Year
  Sex: Female

DRUGS (2)
  1. REPATHA [Suspect]
     Active Substance: EVOLOCUMAB
     Indication: HEPATIC FUNCTION ABNORMAL
     Dosage: UNK, Q3WK
     Route: 058
     Dates: start: 202103
  2. REPATHA [Suspect]
     Active Substance: EVOLOCUMAB
     Indication: HYPERLIPIDAEMIA
     Dosage: UNK, Q2WK
     Route: 058
     Dates: start: 20201218

REACTIONS (4)
  - Dizziness [Recovering/Resolving]
  - Deafness [Not Recovered/Not Resolved]
  - Tinnitus [Unknown]
  - Vertigo [Not Recovered/Not Resolved]

NARRATIVE: CASE EVENT DATE: 20210801
